FAERS Safety Report 4820684-3 (Version None)
Quarter: 2005Q4

REPORT INFORMATION
  Report Type: 
  Country: None (occurrence: None)
  Receive Date: 20051103
  Receipt Date: 20051028
  Transmission Date: 20060501
  Serious: Yes (Other)
  Sender: FDA-Public Use
  Company Number: FRWYE099331OCT05

PATIENT
  Age: 45 Year
  Sex: Female

DRUGS (5)
  1. EFFEXOR [Suspect]
     Route: 048
     Dates: start: 20050101
  2. STILNOX (ZOLPIDEM) [Concomitant]
  3. VALIUM [Concomitant]
  4. NOCTRAN 10 (ACEPROMAZINE/CLORAZEPATE DIPOTASSIUM) [Concomitant]
  5. DEPAKOTE [Suspect]
     Indication: BIPOLAR DISORDER
     Dosage: 1500 MG DAILY
     Route: 048
     Dates: start: 20040901

REACTIONS (6)
  - BRONCHITIS [None]
  - DISEASE RECURRENCE [None]
  - DRUG INEFFECTIVE [None]
  - GENITAL INFECTION FEMALE [None]
  - PANCYTOPENIA [None]
  - TONSILLITIS [None]
